FAERS Safety Report 20838256 (Version 1)
Quarter: 2022Q2

REPORT INFORMATION
  Report Type: Spontaneous
  Country: FR (occurrence: FR)
  Receive Date: 20220517
  Receipt Date: 20220517
  Transmission Date: 20220721
  Serious: Yes (Other)
  Sender: FDA-Public Use
  Company Number: None

PATIENT

DRUGS (2)
  1. PACLITAXEL [Suspect]
     Active Substance: PACLITAXEL
     Indication: Product used for unknown indication
     Dosage: NOT ADMINISTERED
     Route: 041
  2. PACLITAXEL [Suspect]
     Active Substance: PACLITAXEL
     Indication: Product used for unknown indication
     Dosage: STRENGTH: 5 MG/ML, POWDER FOR DISPERSION FOR INFUSION
     Route: 041

REACTIONS (2)
  - Circumstance or information capable of leading to medication error [Unknown]
  - Product label confusion [Unknown]

NARRATIVE: CASE EVENT DATE: 20220221
